FAERS Safety Report 24778066 (Version 2)
Quarter: 2025Q3

REPORT INFORMATION
  Report Type: Report from Study
  Country: US (occurrence: CA)
  Receive Date: 20241226
  Receipt Date: 20250810
  Transmission Date: 20251021
  Serious: Yes (Other)
  Sender: ALEXION PHARMACEUTICALS
  Company Number: US-ASTRAZENECA-202412USA017823US

PATIENT
  Sex: Female

DRUGS (23)
  1. BENRALIZUMAB [Suspect]
     Active Substance: BENRALIZUMAB
     Indication: Asthma
     Dosage: 30 MILLIGRAM, Q8W
  2. OMEPRAZOLE [Concomitant]
     Active Substance: OMEPRAZOLE
     Route: 065
  3. SYMBICORT AEROSPHERE [Concomitant]
     Active Substance: BUDESONIDE\FORMOTEROL FUMARATE
  4. ALBUTEROL [Concomitant]
     Active Substance: ALBUTEROL
  5. ACYCLOVIR [Concomitant]
     Active Substance: ACYCLOVIR
  6. ALLOPURINOL [Concomitant]
     Active Substance: ALLOPURINOL
  7. AMITRIPTYLINE [Concomitant]
     Active Substance: AMITRIPTYLINE
  8. BENZONATATE [Concomitant]
     Active Substance: BENZONATATE
  9. BUSPIRONE [Concomitant]
     Active Substance: BUSPIRONE HYDROCHLORIDE
  10. CANNABIDIOL [Concomitant]
     Active Substance: CANNABIDIOL
  11. MOUNJARO [Concomitant]
     Active Substance: TIRZEPATIDE
  12. IPRATROPIUM [Concomitant]
     Active Substance: IPRATROPIUM
  13. LOSARTAN [Concomitant]
     Active Substance: LOSARTAN
  14. LYRICA [Concomitant]
     Active Substance: PREGABALIN
  15. MELOXICAM [Concomitant]
     Active Substance: MELOXICAM
  16. METOPROLOL [Concomitant]
     Active Substance: METOPROLOL
  17. OZEMPIC [Concomitant]
     Active Substance: SEMAGLUTIDE
  18. QUETIAPINE [Concomitant]
     Active Substance: QUETIAPINE
  19. RIZATRIPTAN [Concomitant]
     Active Substance: RIZATRIPTAN
  20. SIMVASTATIN [Concomitant]
     Active Substance: SIMVASTATIN
  21. TRAVOPROST [Concomitant]
     Active Substance: TRAVOPROST
  22. VITAMIN D3 [Concomitant]
     Active Substance: CHOLECALCIFEROL
  23. Triamcinolon [Concomitant]

REACTIONS (4)
  - Loss of consciousness [Recovered/Resolved]
  - Malaise [Recovered/Resolved]
  - Asthenia [Recovered/Resolved]
  - Headache [Recovered/Resolved]
